FAERS Safety Report 25413061 (Version 1)
Quarter: 2025Q2

REPORT INFORMATION
  Report Type: Spontaneous
  Country: BR (occurrence: BR)
  Receive Date: 20250609
  Receipt Date: 20250609
  Transmission Date: 20250716
  Serious: Yes (Hospitalization, Other)
  Sender: ALEXION PHARMACEUTICALS
  Company Number: BR-SANOFI-02541867

PATIENT
  Age: 8 Month

DRUGS (1)
  1. BEYFORTUS [Suspect]
     Active Substance: NIRSEVIMAB-ALIP
     Route: 065

REACTIONS (5)
  - Encephalitis [Recovering/Resolving]
  - Cough [Recovering/Resolving]
  - Tremor [Recovering/Resolving]
  - Motor dysfunction [Recovering/Resolving]
  - Pyrexia [Recovering/Resolving]
